FAERS Safety Report 16234561 (Version 1)
Quarter: 2019Q2

REPORT INFORMATION
  Report Type: Spontaneous
  Country: IT (occurrence: IT)
  Receive Date: 20190424
  Receipt Date: 20190424
  Transmission Date: 20190711
  Serious: Yes (Other)
  Sender: FDA-Public Use
  Company Number: IT-TAKEDA-2019TEU004826

PATIENT
  Age: 64 Year
  Sex: Female

DRUGS (1)
  1. LANSOPRAZOLE. [Suspect]
     Active Substance: LANSOPRAZOLE
     Indication: PRODUCT USED FOR UNKNOWN INDICATION
     Dosage: UNK
     Route: 065

REACTIONS (4)
  - Dysentery [Recovered/Resolved]
  - Weight decreased [Recovered/Resolved]
  - Hypersensitivity [Recovered/Resolved]
  - Colitis microscopic [Recovered/Resolved]

NARRATIVE: CASE EVENT DATE: 201809
